FAERS Safety Report 25381491 (Version 2)
Quarter: 2025Q2

REPORT INFORMATION
  Report Type: Report from Study
  Country: US (occurrence: US)
  Receive Date: 20250530
  Receipt Date: 20250626
  Transmission Date: 20250716
  Serious: No
  Sender: MALLINCKRODT
  Company Number: US-MALLINCKRODT-MNK202503267

PATIENT
  Age: 6 Month
  Sex: Male
  Weight: 6 kg

DRUGS (2)
  1. CORTICOTROPIN [Suspect]
     Active Substance: CORTICOTROPIN
     Indication: Infantile spasms
     Dosage: 22.4 UNITS
     Route: 030
     Dates: start: 20250514, end: 2025
  2. CORTICOTROPIN [Suspect]
     Active Substance: CORTICOTROPIN
     Route: 030
     Dates: start: 2025

REACTIONS (1)
  - Crying [Recovering/Resolving]

NARRATIVE: CASE EVENT DATE: 20250501
